FAERS Safety Report 18515193 (Version 2)
Quarter: 2020Q4

REPORT INFORMATION
  Report Type: Spontaneous
  Country: US (occurrence: US)
  Receive Date: 20201118
  Receipt Date: 20201202
  Transmission Date: 20210114
  Serious: No
  Sender: FDA-Public Use
  Company Number: US-LUPIN PHARMACEUTICALS INC.-2020-07844

PATIENT
  Age: 53 Year
  Sex: Female
  Weight: 79.37 kg

DRUGS (2)
  1. LISINOPRIL AND HYDROCHLOROTHIAZIDE TABLETS USP 20 MG/25 MG [Suspect]
     Active Substance: HYDROCHLOROTHIAZIDE\LISINOPRIL
     Indication: BLOOD PRESSURE ABNORMAL
     Dosage: 1 DOSAGE FORM, QD
     Route: 048
     Dates: start: 2016
  2. SYNTHROID [Concomitant]
     Active Substance: LEVOTHYROXINE SODIUM
     Indication: THYROID DISORDER
     Dosage: UNKNOWN
     Route: 048

REACTIONS (4)
  - Feeling abnormal [Not Recovered/Not Resolved]
  - Product quality issue [Unknown]
  - Gastrooesophageal reflux disease [Not Recovered/Not Resolved]
  - Product solubility abnormal [Unknown]

NARRATIVE: CASE EVENT DATE: 20201006
